FAERS Safety Report 6573310-X (Version None)
Quarter: 2010Q1

REPORT INFORMATION
  Report Type: 
  Country: None (occurrence: None)
  Receive Date: 20100208
  Receipt Date: 20100127
  Transmission Date: 20100710
  Serious: Yes (Death, Other)
  Sender: FDA-Public Use
  Company Number: JP-PFIZER INC-2009295908

PATIENT
  Age: 78 Year
  Sex: Male
  Weight: 61.5 kg

DRUGS (9)
  1. ZYVOX [Suspect]
     Indication: STAPHYLOCOCCAL OSTEOMYELITIS
     Dosage: 600 MG, 2X/DAY
     Route: 042
     Dates: start: 20091030, end: 20091105
  2. LASIX [Concomitant]
     Indication: PULMONARY OEDEMA
     Dosage: UNK
     Route: 042
     Dates: start: 20091024, end: 20091028
  3. OMEPRAL [Concomitant]
     Indication: GASTROINTESTINAL HAEMORRHAGE
     Dosage: UNK
     Route: 042
     Dates: start: 20091023, end: 20091111
  4. MICAFUNGIN SODIUM [Concomitant]
     Indication: SEPSIS
     Dosage: UNK
     Route: 042
     Dates: start: 20091023, end: 20091025
  5. SOLU-CORTEF [Concomitant]
     Indication: SEPTIC SHOCK
     Route: 042
     Dates: start: 20091023, end: 20091026
  6. MEROPEN [Concomitant]
     Indication: SEPSIS
     Dosage: UNK
     Route: 042
     Dates: start: 20091023, end: 20091030
  7. VANCOMYCIN [Concomitant]
     Indication: SEPSIS
     Dosage: UNK
     Route: 042
     Dates: start: 20091023, end: 20091029
  8. PREDNISOLONE [Concomitant]
     Indication: NEPHROTIC SYNDROME
     Dosage: UNK
     Route: 048
     Dates: start: 20090811, end: 20091022
  9. BREDININ [Concomitant]
     Indication: NEPHROTIC SYNDROME
     Dosage: UNK
     Route: 048
     Dates: start: 20090118, end: 20091022

REACTIONS (5)
  - DISSEMINATED INTRAVASCULAR COAGULATION [None]
  - GASTROINTESTINAL HAEMORRHAGE [None]
  - INTERSTITIAL LUNG DISEASE [None]
  - MULTI-ORGAN FAILURE [None]
  - MUSCLE HAEMORRHAGE [None]
